FAERS Safety Report 19396833 (Version 4)
Quarter: 2021Q3

REPORT INFORMATION
  Report Type: Spontaneous
  Country: JP (occurrence: JP)
  Receive Date: 20210609
  Receipt Date: 20210701
  Transmission Date: 20211014
  Serious: Yes (Death, Hospitalization, Other)
  Sender: FDA-Public Use
  Company Number: JP-ROCHE-2840675

PATIENT
  Age: 70 Year
  Sex: Male

DRUGS (2)
  1. ACTEMRA [Suspect]
     Active Substance: TOCILIZUMAB
     Indication: COVID-19
     Dosage: 680 MILLIGRAM TWICE A WEEK?ON 09/MAY/2021, HE RECEIVED MOST RECENT DOSE PRIOR TO THE EVENTS ONSET
     Route: 041
     Dates: start: 20210502
  2. PREDNISOLONE. [Suspect]
     Active Substance: PREDNISOLONE
     Indication: PRODUCT USED FOR UNKNOWN INDICATION
     Dosage: 50?60 MG
     Route: 065

REACTIONS (7)
  - Blood fibrinogen decreased [Not Recovered/Not Resolved]
  - Haematuria [Unknown]
  - Fibrin D dimer increased [Not Recovered/Not Resolved]
  - Disease progression [Fatal]
  - Gastric haemorrhage [Unknown]
  - Prothrombin time prolonged [Not Recovered/Not Resolved]
  - Off label use [Unknown]

NARRATIVE: CASE EVENT DATE: 20210508
